FAERS Safety Report 21385307 (Version 1)
Quarter: 2022Q3

REPORT INFORMATION
  Report Type: Report from Study
  Country: CA (occurrence: CA)
  Receive Date: 20220928
  Receipt Date: 20220928
  Transmission Date: 20221026
  Serious: Yes (Other)
  Sender: FDA-Public Use
  Company Number: CA-JNJFOC-20220954415

PATIENT

DRUGS (1)
  1. REMICADE [Suspect]
     Active Substance: INFLIXIMAB
     Indication: Inflammatory bowel disease
     Route: 041

REACTIONS (7)
  - Lupus-like syndrome [Unknown]
  - Drug intolerance [Unknown]
  - Pulmonary mass [Unknown]
  - Arthralgia [Unknown]
  - Abdominal pain upper [Unknown]
  - Vasculitis [Unknown]
  - Antibody test positive [Unknown]
